FAERS Safety Report 25466104 (Version 1)
Quarter: 2025Q2

REPORT INFORMATION
  Report Type: Spontaneous
  Country: BR (occurrence: BR)
  Receive Date: 20250623
  Receipt Date: 20250623
  Transmission Date: 20250716
  Serious: Yes (Other)
  Sender: ROCHE
  Company Number: BR-ROCHE-10000313002

PATIENT
  Age: 71 Year
  Sex: Male

DRUGS (2)
  1. ATEZOLIZUMAB [Suspect]
     Active Substance: ATEZOLIZUMAB
     Indication: Hepatocellular carcinoma
     Route: 065
     Dates: start: 202210, end: 202411
  2. BEVACIZUMAB [Suspect]
     Active Substance: BEVACIZUMAB
     Indication: Hepatocellular carcinoma
     Route: 065
     Dates: start: 202210, end: 202311

REACTIONS (13)
  - Hypothyroidism [Unknown]
  - Thrombocytopenia [Unknown]
  - Therapeutic response decreased [Unknown]
  - Ascites [Unknown]
  - Gastric antral vascular ectasia [Unknown]
  - Hepatic mass [Unknown]
  - Product prescribing issue [Unknown]
  - Tumour embolism [Unknown]
  - Hepatic cirrhosis [Unknown]
  - Steatohepatitis [Unknown]
  - Cholecystitis chronic [Unknown]
  - Cholesterosis [Unknown]
  - Lymphoid tissue hyperplasia [Unknown]

NARRATIVE: CASE EVENT DATE: 20221001
